FAERS Safety Report 19010926 (Version 2)
Quarter: 2022Q3

REPORT INFORMATION
  Report Type: Spontaneous
  Country: CA (occurrence: CA)
  Receive Date: 20210315
  Receipt Date: 20220712
  Transmission Date: 20221026
  Serious: Yes (Hospitalization, Other)
  Sender: FDA-Public Use
  Company Number: CA-GLAXOSMITHKLINE-CA2021AMR059417

PATIENT

DRUGS (1)
  1. NIRAPARIB [Suspect]
     Active Substance: NIRAPARIB
     Indication: Product used for unknown indication
     Dosage: UNK

REACTIONS (6)
  - Myelosuppression [Unknown]
  - Oesophagitis [Unknown]
  - Stomatitis [Unknown]
  - Pyrexia [Unknown]
  - Infection [Unknown]
  - Drug interaction [Unknown]
